FAERS Safety Report 5741525-6 (Version None)
Quarter: 2008Q2

REPORT INFORMATION
  Report Type: 
  Country: None (occurrence: None)
  Receive Date: 20080519
  Receipt Date: 20080403
  Transmission Date: 20081010
  Serious: Yes (Death, Other)
  Sender: FDA-Public Use
  Company Number: US-BAYER-200811041BCC

PATIENT
  Sex: Female

DRUGS (2)
  1. ALKA SELTZER (UNKNOWN FORMULATION) [Suspect]
     Indication: DYSPEPSIA
     Route: 048
     Dates: start: 19400101, end: 19600101
  2. DIGITALIS TAB [Concomitant]

REACTIONS (2)
  - CARDIAC FAILURE [None]
  - CEREBROVASCULAR ACCIDENT [None]
